FAERS Safety Report 8620015 (Version 2)
Quarter: 2015Q1

REPORT INFORMATION
  Report Type: Spontaneous
  Country: US (occurrence: US)
  Receive Date: 20120618
  Receipt Date: 20150305
  Transmission Date: 20150721
  Serious: Yes (Death, Hospitalization, Other)
  Sender: FDA-Public Use
  Company Number: US-ASTRAZENECA-2012SE38696

PATIENT
  Age: 78 Year
  Sex: Female
  Weight: 76.2 kg

DRUGS (15)
  1. METFORMIN [Concomitant]
     Active Substance: METFORMIN HYDROCHLORIDE
  2. VIIBRYD [Concomitant]
     Active Substance: VILAZODONE HYDROCHLORIDE
     Dosage: DAILY
  3. MULTIVITAMINS [Concomitant]
     Active Substance: VITAMINS
  4. NEXIUM [Suspect]
     Active Substance: ESOMEPRAZOLE MAGNESIUM
     Indication: ABDOMINAL DISTENSION
     Route: 048
  5. CRANBERRY. [Concomitant]
     Active Substance: CRANBERRY
  6. NEXIUM [Suspect]
     Active Substance: ESOMEPRAZOLE MAGNESIUM
     Indication: FLATULENCE
     Route: 048
  7. STOOL SOFTENER [Concomitant]
     Active Substance: DOCUSATE CALCIUM
  8. ZOLOFT [Suspect]
     Active Substance: SERTRALINE HYDROCHLORIDE
     Indication: DEPRESSION
     Route: 065
  9. NASONEX [Concomitant]
     Active Substance: MOMETASONE FUROATE
     Indication: SEASONAL ALLERGY
  10. VITAMIN B12 [Concomitant]
     Active Substance: CYANOCOBALAMIN
  11. NEXIUM [Suspect]
     Active Substance: ESOMEPRAZOLE MAGNESIUM
     Indication: HIATUS HERNIA
     Route: 048
  12. ZOLOFT [Suspect]
     Active Substance: SERTRALINE HYDROCHLORIDE
     Indication: DEPRESSION
     Route: 065
  13. MAGNESIUM SUPPLEMENTS OXI [Concomitant]
     Dosage: 44 TABLETS OF 400 MG TWO TIMES A DAY
  14. NITROFUR MAC [Concomitant]
     Active Substance: NITROFURANTOIN
     Indication: CYSTITIS
  15. CLOZAPINE. [Concomitant]
     Active Substance: CLOZAPINE
     Indication: ANXIETY

REACTIONS (11)
  - Non-Hodgkin^s lymphoma [Unknown]
  - Serotonin syndrome [Unknown]
  - Product use issue [Unknown]
  - Blood magnesium decreased [Unknown]
  - Depression [Unknown]
  - Off label use [Unknown]
  - Condition aggravated [Unknown]
  - Adverse event [Unknown]
  - Death [Fatal]
  - Leukaemia [Unknown]
  - Malaise [Unknown]

NARRATIVE: CASE EVENT DATE: 2010
